FAERS Safety Report 14478915 (Version 5)
Quarter: 2024Q3

REPORT INFORMATION
  Report Type: Spontaneous
  Country: US (occurrence: US)
  Receive Date: 20180202
  Receipt Date: 20240715
  Transmission Date: 20241016
  Serious: No
  Sender: PFIZER
  Company Number: US-PFIZER INC-2018044193

PATIENT
  Age: 60 Year
  Sex: Female

DRUGS (1)
  1. XELJANZ [Suspect]
     Active Substance: TOFACITINIB CITRATE
     Indication: Rheumatoid arthritis
     Dosage: 5 MG, 2X/DAY
     Route: 048
     Dates: start: 201712

REACTIONS (6)
  - Pain in extremity [Unknown]
  - Nasopharyngitis [Unknown]
  - Dyspepsia [Unknown]
  - Headache [Unknown]
  - Malaise [Unknown]
  - Product dose omission in error [Unknown]
